FAERS Safety Report 4465313-6 (Version None)
Quarter: 2004Q4

REPORT INFORMATION
  Report Type: 
  Country: None (occurrence: None)
  Receive Date: 20041004
  Receipt Date: 20030605
  Transmission Date: 20050328
  Serious: Yes (Hospitalization, Disabling)
  Sender: FDA-Public Use
  Company Number: US-MERCK-0306USA00883

PATIENT
  Age: 67 Year
  Sex: Female

DRUGS (2)
  1. VIOXX [Suspect]
     Route: 048
  2. SPIRONOLACTONE [Concomitant]
     Route: 065

REACTIONS (14)
  - ADVERSE EVENT [None]
  - BREAST CANCER IN SITU [None]
  - BREAST PAIN [None]
  - CHEST PAIN [None]
  - DIZZINESS [None]
  - DIZZINESS POSTURAL [None]
  - OSTEOPOROSIS [None]
  - POLYTRAUMATISM [None]
  - PULMONARY FIBROSIS [None]
  - SEROMA [None]
  - SINUSITIS [None]
  - TINNITUS [None]
  - VERTEBROBASILAR INSUFFICIENCY [None]
  - VERTIGO [None]
